FAERS Safety Report 7979740-3 (Version None)
Quarter: 2011Q4

REPORT INFORMATION
  Report Type: 
  Country: None (occurrence: None)
  Receive Date: 20111214
  Receipt Date: 20111209
  Transmission Date: 20120403
  Serious: Yes (Hospitalization)
  Sender: FDA-Public Use
  Company Number: US-ROCHE-803894

PATIENT
  Age: 77 Year
  Sex: Female

DRUGS (1)
  1. AVASTIN [Suspect]
     Indication: RETINAL VEIN OCCLUSION
     Dosage: EVERY 6-8 WEEKS
     Route: 031

REACTIONS (3)
  - VISUAL IMPAIRMENT [None]
  - PAIN [None]
  - DRUG INEFFECTIVE [None]
